FAERS Safety Report 6748891-3 (Version None)
Quarter: 2010Q2

REPORT INFORMATION
  Report Type: 
  Country: None (occurrence: None)
  Receive Date: 20100601
  Receipt Date: 20100521
  Transmission Date: 20101027
  Serious: Yes (Death, Life-Threatening)
  Sender: FDA-Public Use
  Company Number: US-NOVOPROD-293196

PATIENT
  Sex: Male
  Weight: 220 kg

DRUGS (16)
  1. NOVOSEVEN RT [Suspect]
     Indication: HAEMORRHAGE
     Dosage: UNK
     Dates: start: 20091012, end: 20091012
  2. FOLIC ACID [Concomitant]
     Dosage: 1 MG, QD
     Route: 048
  3. MIRALAX [Concomitant]
     Dosage: 1 CAPS, QD
     Route: 048
  4. DOXAZOSIN MESYLATE [Concomitant]
     Indication: HYPERTENSION
     Dosage: 4 MG, QD
     Route: 048
  5. MINOXIDIL [Concomitant]
     Indication: HYPERTENSION
     Dosage: 10 MG, QD
     Route: 048
  6. HYDRALAZINE HCL [Concomitant]
     Indication: HYPERTENSION
     Dosage: 100 MG, BID
     Route: 048
  7. NEPHRO-VITE                        /01801401/ [Concomitant]
     Dosage: 1 TAB, QD
     Route: 048
  8. SIMVASTATIN [Concomitant]
     Dosage: 20 MG, QD
     Route: 048
  9. ALLOPURINOL [Concomitant]
  10. HYDROXYZINE [Concomitant]
     Dosage: 25 MG, QD
     Route: 048
  11. OMEPRAZOLE [Concomitant]
     Indication: DYSPEPSIA
     Dosage: 20 MG, QD
     Route: 048
  12. OMEPRAZOLE [Concomitant]
     Indication: GASTROOESOPHAGEAL REFLUX DISEASE
  13. COLCHICINE [Concomitant]
     Indication: GOUT
     Dosage: .6 MG, QD
     Route: 048
  14. CLONIDINE [Concomitant]
     Indication: HYPERTENSION
     Dosage: .3 MG, UNK
     Route: 048
  15. METOPROLOL TARTRATE [Concomitant]
     Dosage: 25 MG, BID
     Route: 048
  16. PLAVIX [Concomitant]
     Dosage: 75 MG, QD
     Route: 048

REACTIONS (3)
  - AORTIC THROMBOSIS [None]
  - ATRIAL THROMBOSIS [None]
  - OPERATIVE HAEMORRHAGE [None]
